FAERS Safety Report 8942352 (Version 1)
Quarter: 2012Q4

REPORT INFORMATION
  Report Type: Spontaneous
  Country: US (occurrence: None)
  Receive Date: 20121123
  Receipt Date: 20121123
  Transmission Date: 20130627
  Serious: Yes (Death)
  Sender: FDA-Public Use
  Company Number: UTC-025699

PATIENT
  Age: 46 Year
  Sex: Female
  Weight: 76.82 kg

DRUGS (2)
  1. TYVASCO [Suspect]
     Indication: SARCOIDOSIS
     Dosage: 18-54  micrograms,  Inhalation
     Route: 055
     Dates: start: 20111117
  2. LETAIRIS (AMBRISENTAN) [Concomitant]

REACTIONS (1)
  - Death [None]
